FAERS Safety Report 7124809-9 (Version None)
Quarter: 2010Q4

REPORT INFORMATION
  Report Type: 
  Country: None (occurrence: None)
  Receive Date: 20101129
  Receipt Date: 20101118
  Transmission Date: 20110411
  Serious: Yes (Hospitalization)
  Sender: FDA-Public Use
  Company Number: US-JNJFOC-20100702789

PATIENT
  Sex: Female
  Weight: 54.43 kg

DRUGS (2)
  1. REMICADE [Suspect]
     Indication: ARTHRITIS
     Route: 042
  2. REMICADE [Suspect]
     Indication: PSORIASIS
     Route: 042

REACTIONS (10)
  - ACTIVITIES OF DAILY LIVING IMPAIRED [None]
  - ARTHROPATHY [None]
  - DYSPEPSIA [None]
  - GAIT DISTURBANCE [None]
  - NAUSEA [None]
  - NODULE [None]
  - OROPHARYNGEAL PAIN [None]
  - PNEUMONIA [None]
  - SWELLING [None]
  - UPPER RESPIRATORY TRACT INFECTION [None]
